FAERS Safety Report 6021824-3 (Version None)
Quarter: 2008Q4

REPORT INFORMATION
  Report Type: 
  Country: None (occurrence: None)
  Receive Date: 20081223
  Receipt Date: 20081210
  Transmission Date: 20090506
  Serious: Yes (Other)
  Sender: FDA-Public Use
  Company Number: ALA_00176_2008

PATIENT
  Sex: Male

DRUGS (4)
  1. CORTIFOAM [Suspect]
     Indication: PROPHYLAXIS
     Dosage: (1 DF BID RECTAL), (1 DF QD RECTAL)
     Route: 054
     Dates: end: 20080301
  2. CORTIFOAM [Suspect]
     Indication: PROPHYLAXIS
     Dosage: (1 DF BID RECTAL), (1 DF QD RECTAL)
     Route: 054
     Dates: start: 20061201
  3. PENTASA [Concomitant]
  4. KY JELLY [Concomitant]

REACTIONS (2)
  - FOREIGN BODY TRAUMA [None]
  - PROCTALGIA [None]
